FAERS Safety Report 10468259 (Version 1)
Quarter: 2014Q3

REPORT INFORMATION
  Report Type: Spontaneous
  Country: US (occurrence: US)
  Receive Date: 20140922
  Receipt Date: 20140922
  Transmission Date: 20150326
  Serious: Yes (Other)
  Sender: FDA-Public Use
  Company Number: US-PFIZER INC-2014258169

PATIENT
  Age: 45 Year
  Sex: Female
  Weight: 76.19 kg

DRUGS (1)
  1. RELPAX [Suspect]
     Active Substance: ELETRIPTAN HYDROBROMIDE
     Indication: MIGRAINE
     Dosage: 40 MG, AS NEEDED
     Dates: start: 201405, end: 201408

REACTIONS (8)
  - Activities of daily living impaired [Unknown]
  - Tremor [Unknown]
  - Vomiting [Unknown]
  - Starvation [Unknown]
  - Pain [Unknown]
  - Headache [Unknown]
  - Insomnia [Unknown]
  - Personality change [Unknown]

NARRATIVE: CASE EVENT DATE: 2014
